FAERS Safety Report 7756574-6 (Version None)
Quarter: 2011Q3

REPORT INFORMATION
  Report Type: 
  Country: None (occurrence: None)
  Receive Date: 20110916
  Receipt Date: 20110908
  Transmission Date: 20111222
  Serious: Yes (Other)
  Sender: FDA-Public Use
  Company Number: PHHY2010JP49998

PATIENT
  Sex: Male

DRUGS (1)
  1. NEORAL [Suspect]
     Indication: PSORIASIS
     Dosage: 150 MG PER DAY
     Route: 048
     Dates: end: 20100701

REACTIONS (3)
  - LARGE INTESTINE CARCINOMA [None]
  - PSORIASIS [None]
  - DIARRHOEA [None]
